APPROVED DRUG PRODUCT: ALBUTEROL
Active Ingredient: ALBUTEROL
Strength: 0.09MG/INH
Dosage Form/Route: AEROSOL, METERED;INHALATION
Application: A073272 | Product #001
Applicant: IVAX PHARMACEUTICALS INC SUB TEVA PHARMACEUTICALS USA
Approved: Dec 28, 1995 | RLD: No | RS: No | Type: DISCN